FAERS Safety Report 8035485-5 (Version None)
Quarter: 2012Q1

REPORT INFORMATION
  Report Type: 
  Country: None (occurrence: None)
  Receive Date: 20120110
  Receipt Date: 20120110
  Transmission Date: 20120608
  Serious: No
  Sender: FDA-Public Use
  Company Number: None

PATIENT
  Age: 52 Year
  Sex: Female
  Weight: 102.3 kg

DRUGS (1)
  1. IOVERSOL [Suspect]
     Indication: COMPUTERISED TOMOGRAM
     Dosage: 320 MG ONCE IV
     Route: 042
     Dates: start: 20110616, end: 20110616

REACTIONS (3)
  - RASH [None]
  - CONTRAST MEDIA REACTION [None]
  - URTICARIA [None]
